FAERS Safety Report 7832540-7 (Version None)
Quarter: 2011Q4

REPORT INFORMATION
  Report Type: 
  Country: None (occurrence: None)
  Receive Date: 20111024
  Receipt Date: 20111014
  Transmission Date: 20120403
  Serious: Yes (Hospitalization, Other)
  Sender: FDA-Public Use
  Company Number: GB-BIOGENIDEC-2011BI037495

PATIENT
  Sex: Female

DRUGS (4)
  1. TYSABRI [Suspect]
     Indication: PRODUCT USED FOR UNKNOWN INDICATION
     Route: 042
  2. ASTAXANTHIN [Concomitant]
     Route: 048
  3. BACLOFEN [Concomitant]
  4. OXYBUTININ [Concomitant]

REACTIONS (1)
  - RENAL FAILURE [None]
